FAERS Safety Report 13705690 (Version 1)
Quarter: 2017Q2

REPORT INFORMATION
  Report Type: Spontaneous
  Country: GB (occurrence: GB)
  Receive Date: 20170630
  Receipt Date: 20170630
  Transmission Date: 20170830
  Serious: Yes (Other)
  Sender: FDA-Public Use
  Company Number: GB-TEVA-781018ACC

PATIENT
  Age: 83 Year

DRUGS (12)
  1. NOVOMIX [Concomitant]
     Active Substance: INSULIN ASPART
     Dosage: 44 IU (INTERNATIONAL UNIT) DAILY; 100UNITS/ML
  2. MEBEVERINE [Concomitant]
     Active Substance: MEBEVERINE
     Dosage: 405 MILLIGRAM DAILY;
  3. PARACETAMOL [Concomitant]
     Active Substance: ACETAMINOPHEN
     Dosage: 4 TIMES A DAY
     Route: 048
  4. ISPAGHULA EXTRACT\PSYLLIUM [Concomitant]
     Active Substance: PLANTAGO OVATA SEED\PLANTAGO SEED
     Dosage: 6.8 GRAM DAILY;
     Route: 048
  5. TELMISARTAN. [Concomitant]
     Active Substance: TELMISARTAN
     Dosage: 80 MILLIGRAM DAILY;
  6. LANSOPRAZOLE. [Concomitant]
     Active Substance: LANSOPRAZOLE
     Dosage: 15 MILLIGRAM DAILY;
  7. ACTAVIS UK SPIRONOLACTONE [Concomitant]
     Dosage: 50 MILLIGRAM DAILY;
     Route: 048
  8. METFORMIN [Concomitant]
     Active Substance: METFORMIN HYDROCHLORIDE
     Dosage: 500 MILLIGRAM DAILY;
  9. MIRTAZAPINE. [Suspect]
     Active Substance: MIRTAZAPINE
     Dosage: 15 MILLIGRAM DAILY;
     Route: 048
  10. ASPIRIN. [Concomitant]
     Active Substance: ASPIRIN
     Dosage: 75 MILLIGRAM DAILY;
     Route: 048
  11. BISOPROLOL [Concomitant]
     Active Substance: BISOPROLOL
     Dosage: 1.25 MILLIGRAM DAILY;
  12. SIMVASTATIN. [Concomitant]
     Active Substance: SIMVASTATIN
     Dosage: 40 MILLIGRAM DAILY; NIGHT

REACTIONS (3)
  - Vomiting [Unknown]
  - Atrioventricular block second degree [Recovered/Resolved]
  - Diarrhoea [Unknown]
